FAERS Safety Report 17886093 (Version 1)
Quarter: 2020Q2

REPORT INFORMATION
  Report Type: Spontaneous
  Country: DE (occurrence: DE)
  Receive Date: 20200611
  Receipt Date: 20200611
  Transmission Date: 20200714
  Serious: Yes (Other)
  Sender: FDA-Public Use
  Company Number: DE-ASTRAZENECA-2020SE72476

PATIENT
  Age: 49 Year
  Sex: Female
  Weight: 73 kg

DRUGS (4)
  1. LYNPARZA [Suspect]
     Active Substance: OLAPARIB
     Indication: BREAST CANCER FEMALE
     Route: 048
     Dates: start: 202005
  2. LYNPARZA [Suspect]
     Active Substance: OLAPARIB
     Indication: METASTASES TO BONE
     Route: 048
     Dates: start: 202005
  3. LYNPARZA [Suspect]
     Active Substance: OLAPARIB
     Indication: METASTASES TO BONE
     Dosage: 4 X 1 TABLET 150 MG
     Route: 048
     Dates: start: 20200429
  4. LYNPARZA [Suspect]
     Active Substance: OLAPARIB
     Indication: BREAST CANCER FEMALE
     Dosage: 4 X 1 TABLET 150 MG
     Route: 048
     Dates: start: 20200429

REACTIONS (11)
  - Hypoaesthesia [Unknown]
  - Neurological symptom [Not Recovered/Not Resolved]
  - Dizziness [Not Recovered/Not Resolved]
  - Muscular weakness [Not Recovered/Not Resolved]
  - Pyrexia [Unknown]
  - Headache [Not Recovered/Not Resolved]
  - Head discomfort [Unknown]
  - Photopsia [Not Recovered/Not Resolved]
  - Chills [Unknown]
  - Tinnitus [Unknown]
  - Intracranial pressure increased [Not Recovered/Not Resolved]

NARRATIVE: CASE EVENT DATE: 202005
